FAERS Safety Report 6623269 (Version 2)
Quarter: 2020Q3

REPORT INFORMATION
  Report Type: Report from Study
  Country: US (occurrence: US)
  Receive Date: 20080424
  Receipt Date: 20080722
  Transmission Date: 20201104
  Serious: Yes (Hospitalization)
  Sender: FDA-Public Use
  Company Number: US-WYE-H03652208

PATIENT
  Age: 80 Year
  Sex: Male
  Weight: 89 kg

DRUGS (16)
  1. TRIAMTERENE AND HYDROCHLOROTHIAZIDE [Concomitant]
     Active Substance: HYDROCHLOROTHIAZIDE\TRIAMTERENE
     Indication: OEDEMA
     Dosage: DOSE AND FREQUENCY NOT PROVIDED
     Dates: start: 1998
  2. BENICAR [Concomitant]
     Active Substance: OLMESARTAN MEDOXOMIL
     Indication: HYPERTENSION
     Dosage: DOSE AND FREQUENCY NOT PROVIDED
     Dates: start: 1998
  3. COMPAZINE [Concomitant]
     Active Substance: PROCHLORPERAZINE MALEATE
     Indication: NAUSEA
     Dosage: DOSE AND FREQUENCY NOT PROVIDED
     Dates: start: 20080310
  4. SYNTHROID [Concomitant]
     Active Substance: LEVOTHYROXINE SODIUM
     Indication: HYPERTHYROIDISM
     Dosage: DOSE AND FREQUENCY NOT PROVIDED
     Dates: start: 1957
  5. RITUXIMAB. [Suspect]
     Active Substance: RITUXIMAB
     Indication: NON-HODGKIN^S LYMPHOMA
     Dosage: DOSE NOT SPECIFIED
     Dates: start: 200712
  6. UNSPECIFIED INGREDIENT [Suspect]
     Active Substance: UNSPECIFIED INGREDIENT
     Indication: NON-HODGKIN^S LYMPHOMA
     Route: 042
     Dates: start: 20071213, end: 20080306
  7. LASIX [Concomitant]
     Active Substance: FUROSEMIDE
     Indication: OEDEMA
     Dosage: DOSE AND FREQUENCY NOT PROVIDED
     Dates: start: 20071119
  8. MINOCYCLINE\MINOCYCLINE HYDROCHLORIDE [Concomitant]
     Active Substance: MINOCYCLINE HYDROCHLORIDE
     Indication: ROSACEA
     Dosage: DOSE AND FREUQENCY NOT PROVIDED
  9. CARDURA [Concomitant]
     Active Substance: DOXAZOSIN MESYLATE
     Indication: BLADDER OBSTRUCTION
     Dosage: DOSE AND FREQUENCY NOT PROVIDED
     Dates: start: 1998
  10. PROTONIX [Concomitant]
     Active Substance: PANTOPRAZOLE SODIUM
     Indication: GASTROOESOPHAGEAL REFLUX DISEASE
     Dosage: DOSE AND FREQUENCY NOT PROVIDED
     Dates: start: 20070226
  11. SPIRONOLACTONE. [Concomitant]
     Active Substance: SPIRONOLACTONE
     Indication: HYPERTENSION
     Dosage: DOSE AND FREQUENCY NOT PROVIDED
     Dates: start: 20080403
  12. FLUTICASONE. [Concomitant]
     Active Substance: FLUTICASONE
     Indication: RHINITIS
     Dosage: DOSE AND FREQUENCY NOT PROVIDED
     Dates: start: 20080310
  13. NORVASC [Concomitant]
     Active Substance: AMLODIPINE BESYLATE
     Indication: HYPERTENSION
     Dosage: DOSE AND FREQUENCY NOT PROVIDED
     Dates: start: 1998
  14. LIPITOR [Concomitant]
     Active Substance: ATORVASTATIN CALCIUM
     Indication: HYPERLIPIDAEMIA
     Dosage: DOSE AND FREQUENCY NOT PROVIDED
     Dates: start: 20071119
  15. ZOFRAN [Concomitant]
     Active Substance: ONDANSETRON HYDROCHLORIDE
     Indication: NAUSEA
     Dosage: DOSE AND FREQUENCY NOT PROVIDED
     Dates: start: 20080403
  16. CATAPRES?TTS [Concomitant]
     Active Substance: CLONIDINE
     Indication: HYPERTENSION
     Dosage: DOSE AND FREQUENCY NOT PROVIDED
     Dates: start: 20070226

REACTIONS (4)
  - Duodenal ulcer haemorrhage [None]
  - Duodenal ulcer [Recovered/Resolved]
  - Anaemia [None]
  - Constipation [None]

NARRATIVE: CASE EVENT DATE: 20080412
